FAERS Safety Report 14338487 (Version 6)
Quarter: 2018Q3

REPORT INFORMATION
  Report Type: Spontaneous
  Country: DE (occurrence: DE)
  Receive Date: 20171229
  Receipt Date: 20180920
  Transmission Date: 20181010
  Serious: Yes (Hospitalization, Other)
  Sender: FDA-Public Use
  Company Number: DE-TEVA-2017-DE-838208

PATIENT
  Age: 14 Year
  Sex: Male

DRUGS (8)
  1. CIPRALEX [Interacting]
     Active Substance: ESCITALOPRAM OXALATE
     Dosage: 1 DOSAGE FORMS DAILY; DAILY DOSE: 1 DF DOSAGE FORM EVERY DAY
     Route: 048
  2. ARIPIPRAZOLE. [Interacting]
     Active Substance: ARIPIPRAZOLE
     Indication: PRODUCT USED FOR UNKNOWN INDICATION
     Route: 048
  3. CALCIUM 600 PLUS VITAMIN D [Concomitant]
     Active Substance: CALCIUM CARBONATE\VITAMIN D
     Indication: PRODUCT USED FOR UNKNOWN INDICATION
  4. CALCIUM 600 PLUS VITAMIN D [Concomitant]
     Active Substance: CALCIUM CARBONATE\VITAMIN D
     Indication: NUTRITIONAL SUPPLEMENTATION
     Route: 065
  5. ARIPIPRAZOLE. [Suspect]
     Active Substance: ARIPIPRAZOLE
     Indication: PRODUCT USED FOR UNKNOWN INDICATION
     Route: 065
  6. CIPRALEX [Interacting]
     Active Substance: ESCITALOPRAM OXALATE
     Dosage: 10 GTT DAILY; DAILY DOSE: 10 GTT DROP(S) EVERY DAY
     Route: 048
  7. CIPRALEX [Interacting]
     Active Substance: ESCITALOPRAM OXALATE
     Indication: ANXIETY DISORDER
     Dosage: 5 GTT DAILY; DAILY DOSE: 5 GTT DROP(S) EVERY DAY
     Route: 048
  8. CIPRALEX [Interacting]
     Active Substance: ESCITALOPRAM OXALATE
     Indication: OBSESSIVE-COMPULSIVE DISORDER
     Dosage: 20 GTT DAILY; DAILY DOSE: 20 GTT DROP(S) EVERY DAY
     Route: 048

REACTIONS (8)
  - Disinhibition [Recovering/Resolving]
  - Drug interaction [Unknown]
  - Mental disorder [Recovering/Resolving]
  - Hospitalisation [Unknown]
  - Accidental overdose [Unknown]
  - Therapy change [Unknown]
  - Abnormal behaviour [Recovering/Resolving]
  - Drug administered to patient of inappropriate age [Unknown]
